FAERS Safety Report 23148664 (Version 1)
Quarter: 2023Q4

REPORT INFORMATION
  Report Type: Spontaneous
  Country: US (occurrence: US)
  Receive Date: 20231106
  Receipt Date: 20231106
  Transmission Date: 20240110
  Serious: No
  Sender: FDA-Public Use
  Company Number: US-Albireo AB-2023ALB000266

PATIENT
  Age: 16 Year
  Sex: Female

DRUGS (2)
  1. BYLVAY [Suspect]
     Active Substance: ODEVIXIBAT
     Indication: Progressive familial intrahepatic cholestasis
     Dosage: 5 CAPS ONCE DAILY
     Route: 048
     Dates: start: 20230909
  2. URSODIOL [Concomitant]
     Active Substance: URSODIOL
     Indication: Pruritus
     Route: 048

REACTIONS (2)
  - Abdominal pain upper [Not Recovered/Not Resolved]
  - Diarrhoea [Not Recovered/Not Resolved]

NARRATIVE: CASE EVENT DATE: 20230909
